FAERS Safety Report 10218713 (Version 1)
Quarter: 2014Q1

REPORT INFORMATION
  Report Type: Spontaneous
  Country: US (occurrence: None)
  Receive Date: 20140306
  Receipt Date: 20140306
  Transmission Date: 20141002
  Serious: Yes (Other)
  Sender: FDA-Public Use
  Company Number: 163-21880-13054547

PATIENT
  Age: 69 Year
  Sex: Male
  Weight: 71.67 kg

DRUGS (25)
  1. REVLIMID [Suspect]
     Indication: PLASMA CELL MYELOMA
     Dosage: 25 MG, 21 IN 28 D, PO
     Route: 048
     Dates: start: 20120719
  2. DEXAMETHASONE (DEXAMETHASONE) [Concomitant]
  3. OMEPRAZOLE (OMEPRAZOLE) (CAPSULES) [Concomitant]
  4. IRBESARTAN (IRBESARTAN) (TABLETS) [Concomitant]
  5. ALLEGRA (FEXOFENADINE HYDROCHLORIDE) (TABLETS) [Concomitant]
  6. ASPIRIN (ACETYLSALICYLIC ACID) (ENTERIC-COATED TABLET) [Concomitant]
  7. BYSTOLIC (NEBIVOLOL HYDROCHLORIDE) (ENTERIC-COATED TABLET) [Concomitant]
  8. CALCIUM + VITAMIN D (LEKOVIT CA) (TABLETS) [Concomitant]
  9. FOLIC ACID (FOLIC ACID) (TABLETS) [Concomitant]
  10. LIPITOR (ATORVASTATIN) (TABLETS) [Concomitant]
  11. MVI (MVI) (TABLETS) [Concomitant]
  12. MAGNESIUM (MAGNESIUM) [Concomitant]
  13. SPIRONOLACTONE (SPIRONOLACTONE) (TABLETS) [Concomitant]
  14. SUPER B COMPLEX (VITAMIN B COMPLEX AND VITAMIN C) (COMBEVIT C) (TABLETS) [Concomitant]
  15. TIMOLOL (TIMOLOL) (DROPS) [Concomitant]
  16. VITAMIN B6/MAGNESIUM CITRATE ANDN OXIDE/POTASSIUM CITRATE (POTASSIUM PLUS MAGNESIUM + B6) (TABLETS) [Concomitant]
  17. VITAMIN D (ERGOCALCIFEROL) (CAPSULES) [Concomitant]
  18. ZOMETA (ZOLEDRONIC ACID) (INJECTION) [Concomitant]
  19. CLARITIN (LORATADINE) [Concomitant]
  20. VITAMIN C (ASCORBIC ACID) [Concomitant]
  21. ALPHAGAN (BRIMONIDINE TARTRATE) (EYE DROPS) [Concomitant]
  22. SAW PALMETTO (SERENOA REPENS) [Concomitant]
  23. FLUTICASONE PROPIONATE (FLUTICASONE PROPIONATE) [Concomitant]
  24. VITAMIN E (TOCOPHEROL) [Concomitant]
  25. VITAMIN B6 (PYRIDOXINE HYDROCHLORIDE) [Concomitant]

REACTIONS (4)
  - Swelling face [None]
  - Muscle spasms [None]
  - Fatigue [None]
  - Constipation [None]
